FAERS Safety Report 8413710-6 (Version None)
Quarter: 2012Q2

REPORT INFORMATION
  Report Type: 
  Country: None (occurrence: None)
  Receive Date: 20120605
  Receipt Date: 20120531
  Transmission Date: 20120825
  Serious: Yes (Death, Hospitalization, Other)
  Sender: FDA-Public Use
  Company Number: PT-ABBOTT-12P-130-0941325-00

PATIENT
  Age: 73 Year
  Sex: Male
  Weight: 65 kg

DRUGS (4)
  1. BETA BLOCKING AGENTS [Concomitant]
     Indication: HYPERTENSION
  2. HUMIRA [Suspect]
     Route: 058
     Dates: end: 20120401
  3. HUMIRA [Suspect]
     Indication: ANKYLOSING SPONDYLITIS
     Route: 058
     Dates: start: 20070101, end: 20070101
  4. HUMIRA [Suspect]
     Route: 058
     Dates: start: 20090101, end: 20100101

REACTIONS (7)
  - PNEUMONIA [None]
  - TUBERCULOSIS [None]
  - PULMONARY VASCULITIS [None]
  - AORTIC ANEURYSM RUPTURE [None]
  - INGUINAL HERNIA [None]
  - PATHOGEN RESISTANCE [None]
  - SALMONELLA TEST POSITIVE [None]
